FAERS Safety Report 6684139-6 (Version None)
Quarter: 2010Q2

REPORT INFORMATION
  Report Type: 
  Country: None (occurrence: None)
  Receive Date: 20100416
  Receipt Date: 20100413
  Transmission Date: 20101027
  Serious: Yes (Death, Hospitalization, Other)
  Sender: FDA-Public Use
  Company Number: PHEH2010US01824

PATIENT
  Sex: Male
  Weight: 88 kg

DRUGS (1)
  1. EXJADE [Suspect]
     Indication: MYELODYSPLASTIC SYNDROME
     Dosage: 1750 MG, QD
     Route: 048
     Dates: start: 20091123, end: 20091228

REACTIONS (6)
  - ACUTE MYELOID LEUKAEMIA [None]
  - CARDIAC FAILURE CONGESTIVE [None]
  - FLUID OVERLOAD [None]
  - FLUID RETENTION [None]
  - LEUKAEMIA [None]
  - RESPIRATORY FAILURE [None]
